FAERS Safety Report 6296298-8 (Version None)
Quarter: 2009Q3

REPORT INFORMATION
  Report Type: 
  Country: None (occurrence: None)
  Receive Date: 20090804
  Receipt Date: 20090727
  Transmission Date: 20100115
  Serious: Yes (Hospitalization, Other)
  Sender: FDA-Public Use
  Company Number: CA-ELI_LILLY_AND_COMPANY-CA200907006415

PATIENT
  Age: 66 Year
  Sex: Female

DRUGS (12)
  1. FORTEO [Suspect]
     Indication: OSTEOPOROSIS
     Dosage: 20 UG, DAILY (1/D)
     Route: 058
     Dates: start: 20090107
  2. OXYCONTIN [Concomitant]
  3. PERCOCET /CAN/ [Concomitant]
  4. CALCIUM                                 /N/A/ [Concomitant]
  5. VITAMIN D [Concomitant]
  6. POTASSIUM CHLORIDE [Concomitant]
  7. PMS-METOPROLOL [Concomitant]
  8. AVALIDE [Concomitant]
  9. NORVASC [Concomitant]
  10. ACETYLSALICYLIC ACID [Concomitant]
  11. EZETROL [Concomitant]
  12. LIPITOR [Concomitant]

REACTIONS (3)
  - DEVICE MALFUNCTION [None]
  - FALL [None]
  - FEMUR FRACTURE [None]
